FAERS Safety Report 7158551-5 (Version None)
Quarter: 2010Q4

REPORT INFORMATION
  Report Type: 
  Country: None (occurrence: None)
  Receive Date: 20101214
  Receipt Date: 20100519
  Transmission Date: 20110411
  Serious: No
  Sender: FDA-Public Use
  Company Number: US-ASTRAZENECA-2010SE23288

PATIENT
  Age: 24907 Day
  Sex: Female
  Weight: 57.2 kg

DRUGS (2)
  1. CRESTOR [Suspect]
     Indication: HYPERCHOLESTEROLAEMIA
     Route: 048
     Dates: start: 20090801, end: 20091201
  2. CRESTOR [Suspect]
     Route: 048
     Dates: start: 20091201

REACTIONS (4)
  - ASTHENIA [None]
  - CATARACT OPERATION [None]
  - CHEST DISCOMFORT [None]
  - PAIN IN EXTREMITY [None]
